FAERS Safety Report 24279140 (Version 1)
Quarter: 2024Q3

REPORT INFORMATION
  Report Type: Spontaneous
  Country: US (occurrence: None)
  Receive Date: 20240901
  Receipt Date: 20240901
  Transmission Date: 20241016
  Serious: Yes (Hospitalization)
  Sender: Public
  Company Number: None

PATIENT
  Age: 12 Year
  Sex: Female

DRUGS (1)
  1. ATOMOXETINE [Suspect]
     Active Substance: ATOMOXETINE HYDROCHLORIDE
     Indication: Attention deficit hyperactivity disorder
     Dates: start: 20240823, end: 20240829

REACTIONS (6)
  - Headache [None]
  - Abdominal pain upper [None]
  - Dehydration [None]
  - Vomiting [None]
  - Decreased appetite [None]
  - Liver injury [None]

NARRATIVE: CASE EVENT DATE: 20240901
